FAERS Safety Report 6877092-3 (Version None)
Quarter: 2010Q3

REPORT INFORMATION
  Report Type: 
  Country: None (occurrence: None)
  Receive Date: 20100727
  Receipt Date: 20100713
  Transmission Date: 20110219
  Serious: Yes (Hospitalization)
  Sender: FDA-Public Use
  Company Number: TW-WATSON-2010-09276

PATIENT
  Age: 67 Year
  Sex: Female

DRUGS (1)
  1. LORAZEPAM [Suspect]
     Indication: SEDATION
     Dosage: 10 MG, Q1H
     Route: 042

REACTIONS (3)
  - METABOLIC ACIDOSIS [None]
  - POISONING [None]
  - RENAL FAILURE [None]
